FAERS Safety Report 19890356 (Version 4)
Quarter: 2023Q1

REPORT INFORMATION
  Report Type: Report from Study
  Country: US (occurrence: None)
  Receive Date: 20210928
  Receipt Date: 20230207
  Transmission Date: 20230417
  Serious: Yes (Death, Hospitalization)
  Sender: FDA-Public Use
  Company Number: US-ROCHE-2919001

PATIENT
  Age: 53 Year
  Sex: Female
  Weight: 83.8 kg

DRUGS (6)
  1. ATEZOLIZUMAB [Suspect]
     Active Substance: ATEZOLIZUMAB
     Indication: Invasive breast carcinoma
     Dosage: ON 16/APR/2021 AND ON 18/JUN/2021, THE PATIENT RECEIVED MOST RECENT DOSE OF BLINDED ATEZOLIZUMAB PRI
     Route: 042
     Dates: start: 20210326, end: 20210618
  2. PACLITAXEL [Suspect]
     Active Substance: PACLITAXEL
     Indication: Invasive breast carcinoma
     Dosage: ON 16/APR/2021 AND 02/JUL/2021, THE PATIENT RECEIVED MOST RECENT DOSE OF PACLITAXEL PRIOR TO SERIOUS
     Route: 042
     Dates: start: 20210326, end: 20210702
  3. PERTUZUMAB [Suspect]
     Active Substance: PERTUZUMAB
     Indication: Invasive breast carcinoma
     Dosage: LOADING DOSE 840 MG, FOLLOWED BY MAINTENANCE DOSE OF 420 MG?ON 16/APR/2021 AND ON 18/JUN/2021, THE P
     Route: 042
     Dates: start: 20210326, end: 20210618
  4. TRASTUZUMAB [Suspect]
     Active Substance: TRASTUZUMAB
     Indication: Invasive breast carcinoma
     Dosage: LOADING DOSE, FOLLOWED BY MAINTENANCE DOSE OF 6 MG.KG??ON 16/APR/2021 AND ON 18/JUN/2021, THE PATIEN
     Route: 042
     Dates: start: 20210326, end: 20210618
  5. VANCOMYCIN [Concomitant]
     Active Substance: VANCOMYCIN
     Indication: Pyrexia
     Route: 042
  6. VANCOMYCIN [Concomitant]
     Active Substance: VANCOMYCIN
     Indication: Prophylaxis

REACTIONS (6)
  - Sudden death [Fatal]
  - Hypokalaemia [Recovered/Resolved]
  - Colitis [Recovered/Resolved]
  - Diarrhoea [Recovered/Resolved]
  - Pyrexia [Recovered/Resolved]
  - Enterocolitis [Recovering/Resolving]

NARRATIVE: CASE EVENT DATE: 20210419
